FAERS Safety Report 10784704 (Version 1)
Quarter: 2015Q1

REPORT INFORMATION
  Report Type: Spontaneous
  Country: KP (occurrence: KP)
  Receive Date: 20150211
  Receipt Date: 20150211
  Transmission Date: 20150721
  Serious: Yes (Death)
  Sender: FDA-Public Use
  Company Number: KP-CIPLA LTD.-2015KP01158

PATIENT

DRUGS (2)
  1. CISPLATIN. [Suspect]
     Active Substance: CISPLATIN
     Indication: NON-SMALL CELL LUNG CANCER STAGE III
     Dosage: TWO CYCLES OF 40 MG/M2 ON DAY 1 AND DAY 8 OF EACH CYCLE AT A 3-WEEK INTERVAL
     Route: 042
  2. IRINOTECAN [Suspect]
     Active Substance: IRINOTECAN
     Indication: NON-SMALL CELL LUNG CANCER STAGE IIIA
     Dosage: TWO CYCLES OF 80 MG/M2  ON DAY 1 AND DAY 8 OF EACH CYCLE AT A 3-WEEK INTERVAL
     Route: 042

REACTIONS (1)
  - Diarrhoea [Fatal]
